FAERS Safety Report 17388989 (Version 1)
Quarter: 2020Q1

REPORT INFORMATION
  Report Type: Spontaneous
  Country: US (occurrence: US)
  Receive Date: 20200123
  Receipt Date: 20200123
  Transmission Date: 20200409
  Serious: Yes (Disabling, Other)
  Sender: FDA-Public Use
  Company Number: None

PATIENT
  Age: 82 Year
  Sex: Male
  Weight: 74.84 kg

DRUGS (3)
  1. METROLOL SUCCINATE [Concomitant]
  2. L EVOTHYROXINE SODIUM (125MG) COSTCO 116MCG [Suspect]
     Active Substance: LEVOTHYROXINE SODIUM
     Indication: THYROID DISORDER
     Dosage: ?          QUANTITY:1 PILL;?
     Route: 048
     Dates: start: 20170621, end: 20190705
  3. TRIAMTERENE AND HYDROCHLOROTHIAZIDE [Concomitant]
     Active Substance: HYDROCHLOROTHIAZIDE\TRIAMTERENE

REACTIONS (7)
  - Gait disturbance [None]
  - Product dispensing error [None]
  - Incorrect dose administered [None]
  - Hot flush [None]
  - Overdose [None]
  - Muscle spasms [None]
  - Loss of consciousness [None]
